FAERS Safety Report 25432607 (Version 1)
Quarter: 2025Q2

REPORT INFORMATION
  Report Type: Spontaneous
  Country: BF (occurrence: BF)
  Receive Date: 20250613
  Receipt Date: 20250613
  Transmission Date: 20250716
  Serious: Yes (Hospitalization, Other)
  Sender: RANBAXY
  Company Number: BF-SUN PHARMACEUTICAL INDUSTRIES LTD-2025R1-511407

PATIENT
  Age: 75 Year
  Sex: Female

DRUGS (2)
  1. HALOPERIDOL [Suspect]
     Active Substance: HALOPERIDOL
     Indication: Depression
     Route: 065
  2. PROMETHAZINE [Suspect]
     Active Substance: PROMETHAZINE HYDROCHLORIDE
     Indication: Depression
     Route: 065

REACTIONS (4)
  - Thyrotoxic cardiomyopathy [Recovered/Resolved]
  - Unmasking of previously unidentified disease [Unknown]
  - Primary hyperthyroidism [Recovered/Resolved]
  - Neuroleptic malignant syndrome [Recovered/Resolved]
